FAERS Safety Report 5293087-8 (Version None)
Quarter: 2007Q2

REPORT INFORMATION
  Report Type: 
  Country: None (occurrence: None)
  Receive Date: 20070411
  Receipt Date: 20070330
  Transmission Date: 20071010
  Serious: Yes (Hospitalization)
  Sender: FDA-Public Use
  Company Number: PHHO2007JP06016

PATIENT
  Age: 67 Year
  Sex: Male

DRUGS (10)
  1. NIVADIL [Concomitant]
     Indication: HYPERTENSION
  2. AZELASTINE HCL [Concomitant]
     Indication: HYPERSENSITIVITY
     Dates: start: 19990407, end: 20060305
  3. CYANOCOBALAMIN [Concomitant]
  4. MEVALOTIN [Concomitant]
  5. AMOBAN [Concomitant]
     Indication: INSOMNIA
     Dates: start: 20030206, end: 20060305
  6. GASTER D [Concomitant]
     Indication: GASTRIC ULCER
     Dates: start: 20030612, end: 20060305
  7. LENDORMIN [Concomitant]
     Indication: INSOMNIA
  8. TERNELIN [Concomitant]
     Dates: start: 20060124, end: 20060305
  9. CALBLOCK [Concomitant]
     Dates: start: 20050712, end: 20060305
  10. DIOVAN [Suspect]
     Dosage: 40 MG, QD
     Route: 048
     Dates: start: 20030522, end: 20060305

REACTIONS (5)
  - DIZZINESS [None]
  - HYPOACUSIS [None]
  - PYREXIA [None]
  - SUDDEN HEARING LOSS [None]
  - VOMITING [None]
